FAERS Safety Report 10158433 (Version 1)
Quarter: 2014Q2

REPORT INFORMATION
  Report Type: Report from Study
  Country: AR (occurrence: AR)
  Receive Date: 20140507
  Receipt Date: 20140507
  Transmission Date: 20141212
  Serious: Yes (Other)
  Sender: FDA-Public Use
  Company Number: PHHY2014AR055429

PATIENT
  Age: 75 Year
  Sex: Female

DRUGS (1)
  1. DIOVAN D [Suspect]
     Indication: HYPERTENSION
     Dosage: 2 DF (160/12.5 MG), DAILY
     Route: 048

REACTIONS (8)
  - Poisoning [Unknown]
  - Aortic arteriosclerosis [Unknown]
  - Blood pressure systolic increased [Not Recovered/Not Resolved]
  - Irritable bowel syndrome [Unknown]
  - Fear [Unknown]
  - Neck pain [Unknown]
  - Dizziness [Unknown]
  - Nausea [Unknown]
